FAERS Safety Report 7817593-4 (Version None)
Quarter: 2011Q4

REPORT INFORMATION
  Report Type: 
  Country: None (occurrence: None)
  Receive Date: 20111017
  Receipt Date: 20111010
  Transmission Date: 20120403
  Serious: Yes (Other)
  Sender: FDA-Public Use
  Company Number: PHEH2008US09007

PATIENT
  Sex: Female

DRUGS (6)
  1. VITAMIN D [Concomitant]
  2. SYNTHROID [Concomitant]
  3. ACTONEL [Suspect]
  4. QUININE SULFATE [Concomitant]
  5. ZOMETA [Suspect]
     Indication: OSTEOPOROSIS
     Dosage: 4 MG, QMO
     Dates: start: 20030101, end: 20060101
  6. PRILOSEC [Concomitant]

REACTIONS (9)
  - WOUND DEHISCENCE [None]
  - ANXIETY [None]
  - ANHEDONIA [None]
  - EXPOSED BONE IN JAW [None]
  - INJURY [None]
  - ARTHRITIS [None]
  - OSTEONECROSIS OF JAW [None]
  - DISABILITY [None]
  - PAIN [None]
